FAERS Safety Report 7214559-2 (Version None)
Quarter: 2011Q1

REPORT INFORMATION
  Report Type: 
  Country: None (occurrence: None)
  Receive Date: 20110107
  Receipt Date: 20101229
  Transmission Date: 20110831
  Serious: Yes (Hospitalization, Other)
  Sender: FDA-Public Use
  Company Number: US-BAYER-2011-001230

PATIENT
  Sex: Female

DRUGS (3)
  1. SEROQUEL [Concomitant]
     Indication: DEPRESSION
     Dosage: 100 MG, QD
  2. REMERON [Concomitant]
     Indication: DEPRESSION
     Dosage: 30 MG, QD
  3. BETAFERON [Suspect]
     Indication: RELAPSING-REMITTING MULTIPLE SCLEROSIS
     Dosage: 8 MIU, QOD
     Route: 058
     Dates: start: 20100421, end: 20101226

REACTIONS (7)
  - CONSTIPATION [None]
  - INFECTION [None]
  - INTESTINAL ISCHAEMIA [None]
  - ABDOMINAL PAIN [None]
  - ASTHENIA [None]
  - DEPRESSION [None]
  - ABDOMINAL DISTENSION [None]
